FAERS Safety Report 9339992 (Version 1)
Quarter: 2013Q2

REPORT INFORMATION
  Report Type: Spontaneous
  Country: US (occurrence: US)
  Receive Date: 20130610
  Receipt Date: 20130610
  Transmission Date: 20140414
  Serious: No
  Sender: FDA-Public Use
  Company Number: US-ASTELLAS-2013US004810

PATIENT
  Age: 84 Year
  Sex: Male

DRUGS (4)
  1. XTANDI [Suspect]
     Indication: PROSTATE CANCER
     Dosage: FOUR CAPSULES DAILY
     Route: 048
     Dates: start: 20130412, end: 20130428
  2. XTANDI [Suspect]
     Dosage: 2 DF, UNKNOWN/D
     Dates: start: 20130514
  3. LASIX                              /00032601/ [Concomitant]
     Indication: PRODUCT USED FOR UNKNOWN INDICATION
     Dosage: 20 MG, UID/QD
     Route: 065
  4. LASIX                              /00032601/ [Concomitant]
     Dosage: 40 MG, UID/QD
     Route: 065

REACTIONS (1)
  - Joint swelling [Recovering/Resolving]
